FAERS Safety Report 25743435 (Version 2)
Quarter: 2025Q3

REPORT INFORMATION
  Report Type: Report from Study
  Country: CA (occurrence: CA)
  Receive Date: 20250831
  Receipt Date: 20250922
  Transmission Date: 20251021
  Serious: Yes (Other)
  Sender: Alvotech
  Company Number: CA-JAMP PHARMA CORPORATION-2025-JAM-CA-01463

PATIENT
  Sex: Male

DRUGS (1)
  1. SIMLANDI [Suspect]
     Active Substance: ADALIMUMAB-RYVK
     Indication: Ankylosing spondylitis
     Route: 058
     Dates: end: 202507

REACTIONS (8)
  - Pulmonary oedema [Recovered/Resolved]
  - Pneumonia [Recovered/Resolved]
  - Sputum discoloured [Recovered/Resolved]
  - Sinusitis [Recovered/Resolved]
  - Dyspnoea [Recovered/Resolved]
  - Cough [Recovered/Resolved]
  - Nasal congestion [Recovered/Resolved]
  - Asthenia [Recovered/Resolved]
